FAERS Safety Report 5948202-7 (Version None)
Quarter: 2008Q4

REPORT INFORMATION
  Report Type: 
  Country: None (occurrence: None)
  Receive Date: 20081111
  Receipt Date: 20081103
  Transmission Date: 20090506
  Serious: Yes (Hospitalization)
  Sender: FDA-Public Use
  Company Number: US-ASTRAZENECA-2008UW24660

PATIENT
  Age: 74 Year
  Sex: Female
  Weight: 79.4 kg

DRUGS (2)
  1. PRILOSEC OTC [Suspect]
     Indication: DYSPEPSIA
     Route: 048
     Dates: start: 20071103, end: 20081102
  2. BENEFIBER [Concomitant]

REACTIONS (1)
  - PNEUMONIA [None]
